FAERS Safety Report 10963149 (Version 7)
Quarter: 2020Q2

REPORT INFORMATION
  Report Type: Spontaneous
  Country: US (occurrence: US)
  Receive Date: 20150327
  Receipt Date: 20200610
  Transmission Date: 20200713
  Serious: Yes (Hospitalization, Other)
  Sender: FDA-Public Use
  Company Number: US-ABBVIE-05P-163-0285098-00

PATIENT
  Sex: Male
  Weight: 97.61 kg

DRUGS (3)
  1. DEPAKOTE [Suspect]
     Active Substance: DIVALPROEX SODIUM
     Indication: DEPRESSION
  2. SIMDAX [Suspect]
     Active Substance: LEVOSIMENDAN
     Indication: PRODUCT USED FOR UNKNOWN INDICATION
     Dosage: DILUTING 5ML SIMDAX WITH 5ML OF GLUCOSE, 0,05-0,2MICROG/KG/MIN.
     Route: 065
  3. DEPAKOTE [Suspect]
     Active Substance: DIVALPROEX SODIUM
     Indication: BIPOLAR DISORDER
     Route: 048
     Dates: start: 1998, end: 1998

REACTIONS (55)
  - Red blood cell count decreased [Unknown]
  - Oxygen saturation abnormal [Unknown]
  - Muscle atrophy [Unknown]
  - Obstruction [Unknown]
  - Dehydration [Unknown]
  - Adrenal disorder [Unknown]
  - Oesophageal motility disorder [Not Recovered/Not Resolved]
  - Tooth erosion [Not Recovered/Not Resolved]
  - General physical condition abnormal [Unknown]
  - Cirrhosis alcoholic [Not Recovered/Not Resolved]
  - Unevaluable event [Unknown]
  - Weight increased [Not Recovered/Not Resolved]
  - Crime [Unknown]
  - Liver disorder [Not Recovered/Not Resolved]
  - Pallor [Unknown]
  - Product preparation issue [Unknown]
  - Pain in extremity [Unknown]
  - Epistaxis [Not Recovered/Not Resolved]
  - Diaphragm muscle weakness [Not Recovered/Not Resolved]
  - Cerebral disorder [Unknown]
  - Palpitations [Unknown]
  - Pyrexia [Recovered/Resolved]
  - Gingival pain [Not Recovered/Not Resolved]
  - Thyroid disorder [Unknown]
  - Sleep disorder [Unknown]
  - Hiatus hernia [Unknown]
  - Oesophageal disorder [Unknown]
  - Alopecia [Not Recovered/Not Resolved]
  - Hepatic steatosis [Not Recovered/Not Resolved]
  - Depression [Not Recovered/Not Resolved]
  - Haematotoxicity [Unknown]
  - Hypothalamo-pituitary disorder [Unknown]
  - Hair disorder [Unknown]
  - Hypertension [Unknown]
  - Fluid retention [Unknown]
  - Vagus nerve disorder [Unknown]
  - Hepatic enzyme increased [Not Recovered/Not Resolved]
  - Type 2 diabetes mellitus [Not Recovered/Not Resolved]
  - Coeliac disease [Unknown]
  - Impaired quality of life [Unknown]
  - Fatigue [Not Recovered/Not Resolved]
  - Fungal infection [Unknown]
  - Gingivitis [Not Recovered/Not Resolved]
  - Fatigue [Not Recovered/Not Resolved]
  - Hypertension [Not Recovered/Not Resolved]
  - Gastric cancer [Recovered/Resolved]
  - Suicidal ideation [Unknown]
  - Dry skin [Not Recovered/Not Resolved]
  - Gastritis [Unknown]
  - Metabolic disorder [Unknown]
  - Overweight [Unknown]
  - Abdominal distension [Not Recovered/Not Resolved]
  - Hormone level abnormal [Not Recovered/Not Resolved]
  - Liver function test abnormal [Not Recovered/Not Resolved]
  - Vitamin D deficiency [Not Recovered/Not Resolved]

NARRATIVE: CASE EVENT DATE: 1998
